FAERS Safety Report 14305680 (Version 2)
Quarter: 2019Q1

REPORT INFORMATION
  Report Type: Spontaneous
  Country: GB (occurrence: GB)
  Receive Date: 20171219
  Receipt Date: 20190114
  Transmission Date: 20190417
  Serious: Yes (Hospitalization, Other)
  Sender: FDA-Public Use
  Company Number: GB-OTSUKA-BMS-2015-075858

PATIENT
  Sex: Female

DRUGS (1)
  1. ABILIFY [Suspect]
     Active Substance: ARIPIPRAZOLE
     Indication: PSYCHOTIC DISORDER
     Dosage: UNK
     Route: 065
     Dates: start: 2014

REACTIONS (5)
  - Psychotic disorder [Unknown]
  - Drug ineffective [Unknown]
  - Insomnia [Unknown]
  - Off label use [Unknown]
  - Intentional self-injury [Unknown]
